FAERS Safety Report 5443467-2 (Version None)
Quarter: 2007Q3

REPORT INFORMATION
  Report Type: 
  Country: None (occurrence: None)
  Receive Date: 20070905
  Receipt Date: 20070824
  Transmission Date: 20080115
  Serious: Yes (Death)
  Sender: FDA-Public Use
  Company Number: US-GENENTECH-246887

PATIENT
  Age: 58 Year
  Sex: Female

DRUGS (4)
  1. BEVACIZUMAB [Suspect]
     Indication: COLORECTAL CANCER
     Dosage: 368 MG, Q2W
     Route: 042
     Dates: start: 20070820
  2. CAPECITABINE [Suspect]
     Indication: COLORECTAL CANCER
     Dosage: 5500 MG, QD
     Route: 048
     Dates: start: 20070820
  3. OXALIPLATIN [Suspect]
     Indication: COLORECTAL CANCER
     Dosage: 155 MG, Q2W
     Route: 042
     Dates: start: 20070820
  4. MULTIPLE OTHER MEDICATIONS [Concomitant]
     Indication: DRUG USE FOR UNKNOWN INDICATION

REACTIONS (1)
  - CARDIO-RESPIRATORY ARREST [None]
